FAERS Safety Report 19619853 (Version 1)
Quarter: 2021Q3

REPORT INFORMATION
  Report Type: Spontaneous
  Country: US (occurrence: US)
  Receive Date: 20210728
  Receipt Date: 20210728
  Transmission Date: 20211014
  Serious: No
  Sender: FDA-Public Use
  Company Number: US-ROCHE-2675032

PATIENT
  Age: 73 Year
  Sex: Male

DRUGS (5)
  1. SODIUM BICARBONATE. [Concomitant]
     Active Substance: SODIUM BICARBONATE
  2. XELODA [Suspect]
     Active Substance: CAPECITABINE
     Indication: PRODUCT USED FOR UNKNOWN INDICATION
     Route: 048
     Dates: start: 20200622
  3. XELODA [Suspect]
     Active Substance: CAPECITABINE
     Route: 048
     Dates: start: 202004
  4. GABAPENTIN. [Concomitant]
     Active Substance: GABAPENTIN
  5. XELODA [Suspect]
     Active Substance: CAPECITABINE
     Route: 048
     Dates: start: 202009

REACTIONS (12)
  - Cognitive disorder [Not Recovered/Not Resolved]
  - Temperature intolerance [Unknown]
  - Dysgeusia [Unknown]
  - Arthralgia [Unknown]
  - Dizziness [Unknown]
  - Decreased appetite [Unknown]
  - Joint swelling [Unknown]
  - Pain in jaw [Unknown]
  - Fatigue [Not Recovered/Not Resolved]
  - White blood cell count decreased [Unknown]
  - Tooth infection [Unknown]
  - Neuropathy peripheral [Not Recovered/Not Resolved]

NARRATIVE: CASE EVENT DATE: 20200815
